FAERS Safety Report 9464957 (Version 1)
Quarter: 2013Q3

REPORT INFORMATION
  Report Type: Spontaneous
  Country: US (occurrence: US)
  Receive Date: 20130819
  Receipt Date: 20130819
  Transmission Date: 20140515
  Serious: Yes (Other)
  Sender: FDA-Public Use
  Company Number: US-LUNDBECK-DKLU1093005

PATIENT
  Sex: Male

DRUGS (2)
  1. SABRIL (TABLET) [Suspect]
     Indication: COMPLEX PARTIAL SEIZURES
     Dates: start: 20100513
  2. SABRIL (TABLET) [Suspect]
     Dates: start: 20130411

REACTIONS (1)
  - Retinogram abnormal [Unknown]
